FAERS Safety Report 11076626 (Version 1)
Quarter: 2015Q2

REPORT INFORMATION
  Report Type: Spontaneous
  Country: US (occurrence: US)
  Receive Date: 20150429
  Receipt Date: 20150429
  Transmission Date: 20150821
  Serious: No
  Sender: FDA-Public Use
  Company Number: US-B.I. PHARMACEUTICALS,INC./RIDGEFIELD-2015-BI-20801BP

PATIENT
  Age: 89 Year
  Sex: Female
  Weight: 56 kg

DRUGS (7)
  1. CHONDROITIN [Concomitant]
     Active Substance: CHONDROITIN
     Indication: ARTHRITIS
     Route: 048
  2. SYSTANE (HYPROMELLOSE 2910 (4000 MPA.S)) [Concomitant]
     Active Substance: HYPROMELLOSE 2910 (4000 MPA.S)
     Indication: DRY EYE
     Dosage: 2 ANZ
     Route: 050
  3. GLUCOSAMINE [Concomitant]
     Active Substance: GLUCOSAMINE
     Indication: ARTHRITIS
     Route: 048
  4. PLAVIX [Concomitant]
     Active Substance: CLOPIDOGREL BISULFATE
     Indication: CEREBROVASCULAR ACCIDENT
     Route: 048
     Dates: start: 2009
  5. ZANTAC [Suspect]
     Active Substance: RANITIDINE HYDROCHLORIDE
     Indication: DYSPEPSIA
     Dosage: 150 MG
     Route: 048
     Dates: start: 20150406
  6. LUMIGAN [Concomitant]
     Active Substance: BIMATOPROST
     Indication: GLAUCOMA
     Dosage: 1 ANZ
     Route: 050
  7. ZANTAC [Suspect]
     Active Substance: RANITIDINE HYDROCHLORIDE
     Indication: DYSPEPSIA
     Dosage: STRENGHT: 75 MG
     Route: 048
     Dates: start: 20150415, end: 20150415

REACTIONS (3)
  - Pyrexia [Recovered/Resolved]
  - Incorrect dose administered [Recovered/Resolved]
  - Drug ineffective [Not Recovered/Not Resolved]

NARRATIVE: CASE EVENT DATE: 20150408
